FAERS Safety Report 8510885-5 (Version None)
Quarter: 2012Q3

REPORT INFORMATION
  Report Type: 
  Country: None (occurrence: None)
  Receive Date: 20120710
  Receipt Date: 20120710
  Transmission Date: 20120928
  Serious: No
  Sender: FDA-Public Use
  Company Number: None

PATIENT
  Sex: Female

DRUGS (2)
  1. AMBIEN [Suspect]
     Dosage: QHS
  2. DEPAKOTE [Suspect]
     Dosage: 2 TABS QHS

REACTIONS (11)
  - IMPAIRED WORK ABILITY [None]
  - INSOMNIA [None]
  - ASTHENIA [None]
  - DECREASED APPETITE [None]
  - DEPRESSION SUICIDAL [None]
  - WEIGHT DECREASED [None]
  - ANHEDONIA [None]
  - PRODUCT SUBSTITUTION ISSUE [None]
  - ACTIVITIES OF DAILY LIVING IMPAIRED [None]
  - ABDOMINAL DISCOMFORT [None]
  - ECONOMIC PROBLEM [None]
